FAERS Safety Report 5612667-0 (Version None)
Quarter: 2008Q1

REPORT INFORMATION
  Report Type: 
  Country: None (occurrence: None)
  Receive Date: 20080204
  Receipt Date: 20080124
  Transmission Date: 20080703
  Serious: Yes (Hospitalization)
  Sender: FDA-Public Use
  Company Number: FR-JNJFOC-20070802707

PATIENT
  Sex: Male

DRUGS (4)
  1. IMODIUM [Suspect]
     Indication: DIARRHOEA
     Route: 048
  2. ACETAMINOPHEN [Concomitant]
     Route: 048
  3. VENTOLIN [Concomitant]
     Indication: ASTHMA
  4. SYMBICORT [Concomitant]
     Indication: ASTHMA
     Dosage: ONE IN THE EVEING

REACTIONS (5)
  - ALTERED STATE OF CONSCIOUSNESS [None]
  - ASTHENIA [None]
  - DIPLOPIA [None]
  - EXPIRED DRUG ADMINISTERED [None]
  - VERTIGO [None]
